FAERS Safety Report 12671017 (Version 1)
Quarter: 2016Q3

REPORT INFORMATION
  Report Type: Spontaneous
  Country: US (occurrence: None)
  Receive Date: 20160819
  Receipt Date: 20160819
  Transmission Date: 20161109
  Serious: Yes (Other)
  Sender: FDA-Public Use
  Company Number: None

PATIENT
  Age: 89 Year
  Sex: Female
  Weight: 70.31 kg

DRUGS (3)
  1. AZITHROMYSIN [Suspect]
     Active Substance: AZITHROMYCIN ANHYDROUS
     Indication: EAR INFECTION
     Dosage: 250MG TAB 4 PILLS (T) MOUTH
  2. AZITHROMYSIN [Suspect]
     Active Substance: AZITHROMYCIN ANHYDROUS
     Indication: PHARYNGITIS
     Dosage: 250MG TAB 4 PILLS (T) MOUTH
  3. LEVAQUIN [Suspect]
     Active Substance: LEVOFLOXACIN
     Dosage: 10 PILLS (T)

REACTIONS (11)
  - Hypophagia [None]
  - Disorientation [None]
  - Dysgeusia [None]
  - Nausea [None]
  - Vertigo [None]
  - Eye pain [None]
  - Tendon disorder [None]
  - Facial paralysis [None]
  - Dizziness [None]
  - Decreased appetite [None]
  - Weight decreased [None]

NARRATIVE: CASE EVENT DATE: 20160627
